FAERS Safety Report 15434007 (Version 1)
Quarter: 2018Q3

REPORT INFORMATION
  Report Type: Spontaneous
  Country: US (occurrence: US)
  Receive Date: 20180927
  Receipt Date: 20180927
  Transmission Date: 20181010
  Serious: Yes (Other)
  Sender: FDA-Public Use
  Company Number: US-SA-2018SA177414

PATIENT
  Age: 41 Year
  Sex: Female
  Weight: 104.32 kg

DRUGS (5)
  1. PARAPLATIN [Concomitant]
     Active Substance: CARBOPLATIN
  2. TAXOTERE [Suspect]
     Active Substance: DOCETAXEL
     Indication: BREAST CANCER FEMALE
     Dosage: 65 MG, Q3W
     Route: 042
     Dates: start: 20110120, end: 20110120
  3. TAXOTERE [Suspect]
     Active Substance: DOCETAXEL
     Dosage: 65 MG, Q3W
     Route: 042
     Dates: start: 20110518, end: 20110518
  4. TAXOTERE [Suspect]
     Active Substance: DOCETAXEL
     Dosage: 65 UNK
     Route: 042
     Dates: start: 20110719, end: 20110719
  5. HERCEPTIN [Concomitant]
     Active Substance: TRASTUZUMAB

REACTIONS (2)
  - Alopecia [Not Recovered/Not Resolved]
  - Psychological trauma [Unknown]

NARRATIVE: CASE EVENT DATE: 20100201
